FAERS Safety Report 9043500 (Version 1)
Quarter: 2013Q1

REPORT INFORMATION
  Report Type: Report from Study
  Country: US (occurrence: US)
  Receive Date: 20130129
  Receipt Date: 20130129
  Transmission Date: 20140127
  Serious: No
  Sender: FDA-Public Use
  Company Number: US-ABBOTT-12P-163-0909679-00

PATIENT
  Sex: Female
  Weight: 80.81 kg

DRUGS (19)
  1. HUMIRA 40 MG/0.8 ML PEN [Suspect]
     Indication: RHEUMATOID ARTHRITIS
     Route: 058
     Dates: start: 201111, end: 20120227
  2. HUMIRA 40 MG/0.8 ML PEN [Suspect]
     Route: 058
     Dates: start: 20120227
  3. PRASCION [Concomitant]
     Indication: ROSACEA
  4. NIZORAL [Concomitant]
     Indication: SEBORRHOEIC DERMATITIS
  5. PROMISEB CREAM [Concomitant]
     Indication: SEBORRHOEIC DERMATITIS
  6. ALLEGRA-D [Concomitant]
     Indication: HYPERSENSITIVITY
  7. CYMBALTA [Concomitant]
     Indication: DEPRESSION
  8. CLONAZEPAM [Concomitant]
     Indication: ANXIETY
  9. CLONAZEPAM [Concomitant]
     Indication: MUSCULOSKELETAL DISCOMFORT
  10. METHOCARBAMOL [Concomitant]
     Indication: MUSCLE RELAXANT THERAPY
  11. TRAZODONE [Concomitant]
     Indication: INSOMNIA
  12. BENAZEPRIL HCL/HCTZ [Concomitant]
     Indication: HYPERTENSION
  13. LEVOTHYROXINE [Concomitant]
     Indication: HYPOTHYROIDISM
  14. VITAMIN D [Concomitant]
     Indication: VITAMIN SUPPLEMENTATION
  15. COVARYX [Concomitant]
     Indication: HORMONE REPLACEMENT THERAPY
  16. VITAMIN B COMPLEX [Concomitant]
     Indication: VITAMIN SUPPLEMENTATION
  17. HEAD AND SHOULDERS [Concomitant]
     Indication: SEBORRHOEIC DERMATITIS
  18. UNKNOWN EYE DROPS [Concomitant]
     Indication: DRY EYE
     Route: 047
  19. OMEPRAZOLE [Concomitant]
     Indication: GASTRIC DISORDER

REACTIONS (4)
  - Drug ineffective [Not Recovered/Not Resolved]
  - Local swelling [Not Recovered/Not Resolved]
  - Local swelling [Not Recovered/Not Resolved]
  - Joint swelling [Not Recovered/Not Resolved]
